FAERS Safety Report 6029405-2 (Version None)
Quarter: 2009Q1

REPORT INFORMATION
  Report Type: 
  Country: None (occurrence: None)
  Receive Date: 20090105
  Receipt Date: 20081222
  Transmission Date: 20090719
  Serious: No
  Sender: FDA-Public Use
  Company Number: 2008-175745-NL

PATIENT
  Age: 27 Year
  Sex: Female

DRUGS (1)
  1. VECURONIUM BROMIDE [Suspect]
     Indication: GENERAL ANAESTHESIA
     Route: 042
     Dates: start: 19870101, end: 19870101

REACTIONS (2)
  - ALLERGY TEST POSITIVE [None]
  - LARYNGOSPASM [None]
